FAERS Safety Report 8449559-8 (Version None)
Quarter: 2012Q2

REPORT INFORMATION
  Report Type: 
  Country: None (occurrence: None)
  Receive Date: 20120620
  Receipt Date: 20120618
  Transmission Date: 20120825
  Serious: Yes (Hospitalization)
  Sender: FDA-Public Use
  Company Number: US-AMGEN-USASP2012037721

PATIENT
  Age: 64 Year
  Sex: Male

DRUGS (1)
  1. ENBREL [Suspect]
     Indication: PSORIASIS
     Dosage: 50 MG, QWK
     Dates: start: 20060101

REACTIONS (7)
  - ABDOMINAL HERNIA [None]
  - RASH PRURITIC [None]
  - LIP SWELLING [None]
  - GINGIVAL SWELLING [None]
  - HYPOAESTHESIA ORAL [None]
  - RASH PAPULAR [None]
  - BRONCHITIS [None]
